FAERS Safety Report 5643110-3 (Version None)
Quarter: 2008Q1

REPORT INFORMATION
  Report Type: 
  Country: None (occurrence: None)
  Receive Date: 20080227
  Receipt Date: 20080227
  Transmission Date: 20080703
  Serious: Yes (Other)
  Sender: FDA-Public Use
  Company Number: None

PATIENT
  Age: 49 Year
  Sex: Male
  Weight: 73.4827 kg

DRUGS (2)
  1. DIFLUNISAL [Suspect]
     Indication: NEUROPATHY PERIPHERAL
     Dosage: 1 TAB TWICE A DAY  TWICE A DAY  PO
     Route: 048
     Dates: start: 20080208, end: 20080212
  2. DIFLUNISAL [Suspect]
     Indication: NEUROPATHY PERIPHERAL
     Dosage: 1 TAB TWICE A DAY  TWICE A DAY  PO
     Route: 048
     Dates: start: 20080215, end: 20080222

REACTIONS (1)
  - BLOOD URINE PRESENT [None]
